FAERS Safety Report 11728634 (Version 1)
Quarter: 2015Q4

REPORT INFORMATION
  Report Type: Spontaneous
  Country: US (occurrence: US)
  Receive Date: 20151112
  Receipt Date: 20151112
  Transmission Date: 20160304
  Serious: No
  Sender: FDA-Public Use
  Company Number: US-BAYER-2015-463537

PATIENT
  Age: 79 Year
  Sex: Female
  Weight: 82.54 kg

DRUGS (8)
  1. CLARITIN REDITABS [Suspect]
     Active Substance: LORATADINE
     Indication: NASAL CONGESTION
  2. CLARITIN REDITABS [Suspect]
     Active Substance: LORATADINE
     Indication: HEARING IMPAIRED
  3. CLARITIN-D 12 HOUR [Suspect]
     Active Substance: LORATADINE\PSEUDOEPHEDRINE SULFATE
     Indication: NASAL CONGESTION
  4. CLARITIN REDITABS [Suspect]
     Active Substance: LORATADINE
     Indication: OTORRHOEA
     Dosage: 1 DF, PRN
     Route: 048
  5. CLARITIN REDITABS [Suspect]
     Active Substance: LORATADINE
     Indication: COUGH
  6. CLARITIN-D 12 HOUR [Suspect]
     Active Substance: LORATADINE\PSEUDOEPHEDRINE SULFATE
     Indication: OTORRHOEA
  7. CLARITIN-D 12 HOUR [Suspect]
     Active Substance: LORATADINE\PSEUDOEPHEDRINE SULFATE
     Indication: HEARING IMPAIRED
     Dosage: UNK
     Route: 048
  8. BAYER LOW DOSE [Suspect]
     Active Substance: ASPIRIN
     Indication: THROMBOSIS PROPHYLAXIS
     Dosage: 1 DF, QD
     Route: 048

REACTIONS (1)
  - Off label use [Unknown]
